FAERS Safety Report 16207829 (Version 1)
Quarter: 2019Q2

REPORT INFORMATION
  Report Type: Spontaneous
  Country: US (occurrence: US)
  Receive Date: 20190417
  Receipt Date: 20190417
  Transmission Date: 20190711
  Serious: Yes (Other)
  Sender: FDA-Public Use
  Company Number: US-009507513-1904USA005368

PATIENT
  Age: 21 Year
  Sex: Female
  Weight: 126.53 kg

DRUGS (2)
  1. NEXPLANON [Suspect]
     Active Substance: ETONOGESTREL
     Indication: CONTRACEPTION
     Dosage: ROD
     Route: 059
  2. NEXPLANON [Suspect]
     Active Substance: ETONOGESTREL
     Dosage: 1 ROD EVERY 3 YEARS; ROUTE REPORTED AS ^8 CM MEDIAL TO THE LATERAL EPICONDYLE, 4 CM INFERIOR TO THE
     Route: 059
     Dates: start: 20190301

REACTIONS (4)
  - Metrorrhagia [Not Recovered/Not Resolved]
  - Device kink [Not Recovered/Not Resolved]
  - Device dislocation [Unknown]
  - Dysmenorrhoea [Not Recovered/Not Resolved]

NARRATIVE: CASE EVENT DATE: 2019
